FAERS Safety Report 4561430-0 (Version None)
Quarter: 2005Q1

REPORT INFORMATION
  Report Type: 
  Country: None (occurrence: None)
  Receive Date: 20050126
  Receipt Date: 20050118
  Transmission Date: 20050727
  Serious: Yes (Other)
  Sender: FDA-Public Use
  Company Number: PHBS2005NO01171

PATIENT
  Age: 64 Year
  Sex: Female

DRUGS (7)
  1. REMICADE [Suspect]
     Indication: POLYARTHRITIS
     Dosage: 200 MG EVERY 7 WEEKS
     Route: 042
     Dates: start: 20020929, end: 20041213
  2. NSAID'S [Concomitant]
     Dosage: UNK, PRN
  3. SOBRIL [Concomitant]
     Dosage: UNK, PRN
  4. CELEBRA [Concomitant]
     Route: 048
     Dates: start: 20041001
  5. VIOXX [Concomitant]
     Dates: end: 20040901
  6. PARALGIN FORTE [Suspect]
     Dosage: UNK, PRN
     Route: 048
  7. SANDIMMUNE [Suspect]
     Indication: POLYARTHRITIS
     Dosage: 150 MG/D
     Route: 048
     Dates: start: 19980101, end: 20041213

REACTIONS (7)
  - BOWEN'S DISEASE [None]
  - LICHEN PLANUS [None]
  - PARAKERATOSIS [None]
  - SCAB [None]
  - SKIN DISORDER [None]
  - SKIN LESION EXCISION [None]
  - SQUAMOUS CELL CARCINOMA [None]
